FAERS Safety Report 6965091-2 (Version None)
Quarter: 2010Q3

REPORT INFORMATION
  Report Type: 
  Country: None (occurrence: None)
  Receive Date: 20100903
  Receipt Date: 20100830
  Transmission Date: 20110219
  Serious: Yes (Other)
  Sender: FDA-Public Use
  Company Number: US-SANOFI-AVENTIS-2010SA038126

PATIENT
  Age: 64 Year
  Sex: Female
  Weight: 105 kg

DRUGS (23)
  1. SOLOSTAR [Suspect]
     Indication: DIABETES MELLITUS
  2. SOLOSTAR [Suspect]
  3. LANTUS [Suspect]
     Indication: DIABETES MELLITUS
     Dosage: DOSE:38 UNIT(S)
     Route: 058
  4. LANTUS [Suspect]
     Dosage: DOSE:38 UNIT(S)
     Route: 058
  5. VITAMIN D3 [Concomitant]
  6. TENORMIN [Concomitant]
  7. COZAAR [Concomitant]
  8. GLUCOVANCE [Concomitant]
     Dosage: 5/500 MG X4
  9. OMEPRAZOLE [Concomitant]
  10. AMILORIDE HYDROCHLORIDE [Concomitant]
  11. PRIMIDONE [Concomitant]
  12. SYNTHROID [Concomitant]
  13. CYMBALTA [Concomitant]
  14. IRON [Concomitant]
  15. HUMALOG [Concomitant]
     Dosage: DOSE:12 UNIT(S)
  16. CALCIUM [Concomitant]
  17. ASPIRIN [Concomitant]
  18. MAGNESIUM [Concomitant]
  19. CENTRUM SILVER [Concomitant]
  20. NASONEX [Concomitant]
  21. METROGEL [Concomitant]
  22. CLONAZEPAM [Concomitant]
  23. CLARITIN [Concomitant]

REACTIONS (5)
  - BLOOD GLUCOSE INCREASED [None]
  - FALL [None]
  - FRACTURE [None]
  - PRODUCT QUALITY ISSUE [None]
  - ROTATOR CUFF REPAIR [None]
